FAERS Safety Report 5406681-8 (Version None)
Quarter: 2007Q3

REPORT INFORMATION
  Report Type: 
  Country: None (occurrence: None)
  Receive Date: 20070803
  Receipt Date: 20070803
  Transmission Date: 20080115
  Serious: Yes (Other)
  Sender: FDA-Public Use
  Company Number: None

PATIENT
  Age: 52 Year
  Sex: Male
  Weight: 86.1834 kg

DRUGS (9)
  1. CARBOPLATIN [Suspect]
     Indication: LUNG NEOPLASM MALIGNANT
     Dosage: 190 MG IV IN 100ML D5W WEEKLY
     Route: 042
     Dates: start: 20070718, end: 20070725
  2. ATENOLOL [Concomitant]
  3. DIAZEPAM [Concomitant]
  4. EFFEXOR XR [Concomitant]
  5. OMEPRAZOLE [Concomitant]
  6. CIMETIDINE HCL [Concomitant]
  7. MS CONTIN [Concomitant]
  8. LORTAB [Concomitant]
  9. OXYBUTININ [Concomitant]

REACTIONS (3)
  - BLOOD PRESSURE DECREASED [None]
  - DIZZINESS [None]
  - PARAESTHESIA [None]
